FAERS Safety Report 11906650 (Version 1)
Quarter: 2016Q1

REPORT INFORMATION
  Report Type: Spontaneous
  Country: ES (occurrence: ES)
  Receive Date: 20160111
  Receipt Date: 20160111
  Transmission Date: 20160526
  Serious: Yes (Other)
  Sender: FDA-Public Use
  Company Number: ES-GLAXOSMITHKLINE-ES2016001868

PATIENT
  Age: 34 Year
  Sex: Female

DRUGS (5)
  1. KEPPRA [Concomitant]
     Active Substance: LEVETIRACETAM
     Dosage: 1250 MG, BID
     Route: 048
  2. BENLYSTA [Suspect]
     Active Substance: BELIMUMAB
     Indication: SYSTEMIC LUPUS ERYTHEMATOSUS
     Dosage: 570 MG/KG/MES
     Route: 042
     Dates: start: 20141121, end: 20150414
  3. ATARAX TABLET (HYDROXYZINE HYDROCHLORIDE) [Concomitant]
     Dosage: 25 MG, QD
     Route: 048
  4. DOLQUINE [Concomitant]
     Active Substance: HYDROXYCHLOROQUINE SULFATE
     Dosage: 200 MG, QD
     Route: 048
  5. NOIAFREN [Concomitant]
     Active Substance: CLOBAZAM
     Dosage: 10 MG, TID
     Route: 048

REACTIONS (4)
  - Rash papular [Recovering/Resolving]
  - Rash erythematous [Recovering/Resolving]
  - Dermatitis bullous [Recovering/Resolving]
  - Hyperkeratosis [Recovering/Resolving]

NARRATIVE: CASE EVENT DATE: 20150414
